FAERS Safety Report 7873794-0 (Version None)
Quarter: 2011Q4

REPORT INFORMATION
  Report Type: 
  Country: None (occurrence: None)
  Receive Date: 20111030
  Receipt Date: 20110510
  Transmission Date: 20120403
  Serious: No
  Sender: FDA-Public Use
  Company Number: US-AMGEN-USASP2011024177

PATIENT
  Age: 55 Year
  Sex: Female

DRUGS (1)
  1. ENBREL [Suspect]
     Indication: RHEUMATOID ARTHRITIS
     Dates: start: 20110201, end: 20110430

REACTIONS (11)
  - HYPERSENSITIVITY [None]
  - SEASONAL ALLERGY [None]
  - INJECTION SITE ERYTHEMA [None]
  - INJECTION SITE SWELLING [None]
  - ALLERGY TO CHEMICALS [None]
  - ORAL HERPES [None]
  - SINUS CONGESTION [None]
  - FOOD ALLERGY [None]
  - FLUID RETENTION [None]
  - RHEUMATOID ARTHRITIS [None]
  - INJECTION SITE URTICARIA [None]
